FAERS Safety Report 4947516-7 (Version None)
Quarter: 2006Q1

REPORT INFORMATION
  Report Type: 
  Country: None (occurrence: None)
  Receive Date: 20060314
  Receipt Date: 20060227
  Transmission Date: 20060701
  Serious: Yes (Hospitalization)
  Sender: FDA-Public Use
  Company Number: DEU-2006-0002019

PATIENT
  Age: 52 Year
  Sex: Male
  Weight: 92 kg

DRUGS (4)
  1. OXY/NALOXONE VS OXY/PLACEBO CR TAB(OXY/NALOXONE VS OXY/PLACEBO CR TAB) [Suspect]
     Indication: BACK PAIN
     Dosage: ORAL
     Route: 048
  2. LISINOPRIL [Concomitant]
  3. LEVOTHYROXINE SODIUM [Concomitant]
  4. POTASSIUM IODIDE (POTASSIUM IODIDE) [Concomitant]

REACTIONS (2)
  - FALL [None]
  - MUSCLE RUPTURE [None]
